FAERS Safety Report 5814906-X (Version None)
Quarter: 2008Q3

REPORT INFORMATION
  Report Type: 
  Country: None (occurrence: None)
  Receive Date: 20080718
  Receipt Date: 20080709
  Transmission Date: 20090109
  Serious: Yes (Death, Other)
  Sender: FDA-Public Use
  Company Number: CN-ROCHE-575766

PATIENT
  Age: 36 Year
  Sex: Female

DRUGS (2)
  1. CEFTRIAXONE SODIUM [Suspect]
     Indication: EYE INFECTION
     Dosage: INJURY OF RIGHT CORNEA AND SUBSEQUENT INFECTION. GIVEN WITH 5% GLUCOSE SODIUM CHLORIDE.
     Route: 042
  2. CEFTRIAXONE SODIUM [Suspect]
     Route: 042

REACTIONS (4)
  - ANAPHYLACTIC SHOCK [None]
  - DEATH [None]
  - NAUSEA [None]
  - VOMITING [None]
